FAERS Safety Report 7328250 (Version 4)
Quarter: 2013Q2

REPORT INFORMATION
  Report Type: Spontaneous
  Country: DE (occurrence: DE)
  Receive Date: 20100323
  Receipt Date: 20130508
  Transmission Date: 20140414
  Serious: Yes (Death, Life-Threatening, Hospitalization, Other)
  Sender: FDA-Public Use
  Company Number: DE-ROCHE-680084

PATIENT
  Age: 44 Year
  Sex: Female
  Weight: 57 kg

DRUGS (12)
  1. ROACTEMRA [Suspect]
     Indication: POLYARTHRITIS
     Dosage: GIVEN ON 16-SEP-2009 AND ON 12-OCT-2009
     Route: 042
     Dates: start: 20090916, end: 20091012
  2. CYCLOPHOSPHAMIDE [Suspect]
     Indication: PRODUCT USED FOR UNKNOWN INDICATION
     Route: 065
  3. NOVALGIN [Suspect]
     Indication: PRODUCT USED FOR UNKNOWN INDICATION
     Route: 065
  4. MESNA [Suspect]
     Indication: PRODUCT USED FOR UNKNOWN INDICATION
     Route: 065
  5. TAZOBAC [Suspect]
     Indication: URINARY TRACT INFECTION
     Route: 065
     Dates: start: 201102
  6. PREDNISONE [Concomitant]
     Indication: PREMEDICATION
     Route: 065
     Dates: start: 20090916, end: 20090916
  7. H1 BLOCKER [Concomitant]
     Indication: PREMEDICATION
     Route: 065
     Dates: start: 20090916, end: 20090916
  8. ARCOXIA [Concomitant]
  9. DECORTIN [Concomitant]
     Route: 048
  10. NEUPOGEN [Concomitant]
  11. MERONEM [Concomitant]
  12. VANCOMYCIN [Concomitant]

REACTIONS (32)
  - Toxic epidermal necrolysis [Fatal]
  - Anaphylactic shock [Recovered/Resolved]
  - Renal failure [Unknown]
  - Urinary tract infection [Unknown]
  - Myocarditis [Unknown]
  - Respiratory failure [Not Recovered/Not Resolved]
  - Alopecia totalis [Not Recovered/Not Resolved]
  - Hypertension [Recovered/Resolved]
  - Nephrotic syndrome [Not Recovered/Not Resolved]
  - Pancytopenia [Not Recovered/Not Resolved]
  - Stomatitis [Unknown]
  - Decreased appetite [Unknown]
  - Proteinuria [Not Recovered/Not Resolved]
  - Hypoalbuminaemia [Not Recovered/Not Resolved]
  - Bone marrow disorder [Not Recovered/Not Resolved]
  - Aphasia [Unknown]
  - Facial paresis [Unknown]
  - Depression [Unknown]
  - Urticaria [Unknown]
  - Visual impairment [Unknown]
  - Viral infection [Unknown]
  - Bacterial infection [Unknown]
  - Parosmia [Unknown]
  - Dysgeusia [Unknown]
  - Hyperhidrosis [Unknown]
  - Nausea [Unknown]
  - Vomiting [Unknown]
  - Diarrhoea [Unknown]
  - Dizziness [Unknown]
  - Insomnia [Unknown]
  - Migraine [Unknown]
  - Wheezing [Unknown]
